FAERS Safety Report 6160825-1 (Version None)
Quarter: 2009Q2

REPORT INFORMATION
  Report Type: 
  Country: None (occurrence: None)
  Receive Date: 20090420
  Receipt Date: 20090415
  Transmission Date: 20091009
  Serious: Yes (Other)
  Sender: FDA-Public Use
  Company Number: US-SANOFI-SYNTHELABO-A03200901623

PATIENT
  Age: 71 Year
  Sex: Female

DRUGS (7)
  1. PLAVIX [Suspect]
     Indication: MYOCARDIAL INFARCTION
     Route: 048
     Dates: start: 20010828
  2. MULTI-VITAMIN [Concomitant]
     Indication: DRUG USE FOR UNKNOWN INDICATION
     Dosage: UNK
     Route: 065
  3. POTASSIUM CHLORIDE [Concomitant]
     Indication: DRUG USE FOR UNKNOWN INDICATION
     Dosage: UNK
     Route: 048
     Dates: start: 20010801
  4. LASIX [Concomitant]
     Indication: DRUG USE FOR UNKNOWN INDICATION
     Route: 048
     Dates: start: 20010801
  5. HYZAAR [Concomitant]
     Indication: DRUG USE FOR UNKNOWN INDICATION
     Dosage: 50/12.5MG DAILY
     Route: 048
     Dates: start: 20010801
  6. LEVOTHYROXINE SODIUM [Concomitant]
     Indication: BRADYCARDIA
     Route: 048
     Dates: start: 19750101
  7. PREMARIN [Concomitant]
     Indication: HYSTERECTOMY
     Route: 048
     Dates: start: 19800101

REACTIONS (5)
  - ANAEMIA [None]
  - ANGINA PECTORIS [None]
  - AORTIC ANEURYSM RUPTURE [None]
  - ASTHENIA [None]
  - CORONARY ARTERY OCCLUSION [None]
